FAERS Safety Report 8961332 (Version 1)
Quarter: 2012Q4

REPORT INFORMATION
  Report Type: 
  Country: DE (occurrence: DE)
  Receive Date: 20121213
  Receipt Date: 20121213
  Transmission Date: 20130627
  Serious: Yes (Hospitalization, Other)
  Sender: FDA-Public Use
  Company Number: DE-BAYER-2012-130526

PATIENT
  Age: 25 Year
  Sex: Female
  Weight: 89 kg

DRUGS (1)
  1. MIRENA [Suspect]
     Indication: CONTRACEPTION
     Dosage: 20 mcg/24hr, CONT
     Route: 015
     Dates: start: 20111017, end: 20120827

REACTIONS (28)
  - Abdominal pain lower [Unknown]
  - Renal pain [Unknown]
  - Pelvic pain [Unknown]
  - Initial insomnia [Unknown]
  - Alopecia [Unknown]
  - Hair disorder [Unknown]
  - Restlessness [Unknown]
  - Tension [Unknown]
  - Anxiety [Unknown]
  - Panic attack [Unknown]
  - Depression [Unknown]
  - Dizziness [Unknown]
  - Dizziness [Unknown]
  - Palpitations [Unknown]
  - Arrhythmia [Unknown]
  - Tinnitus [Unknown]
  - Hyperhidrosis [Unknown]
  - Feeling cold [Unknown]
  - Weight increased [Unknown]
  - Dyspepsia [Unknown]
  - Libido decreased [Unknown]
  - Visual impairment [Unknown]
  - Headache [Unknown]
  - Blindness [Unknown]
  - Circulatory collapse [Unknown]
  - Respiratory distress [None]
  - Middle insomnia [Unknown]
  - Food intolerance [Unknown]
